FAERS Safety Report 22260970 (Version 1)
Quarter: 2023Q2

REPORT INFORMATION
  Report Type: Spontaneous
  Country: IT (occurrence: IT)
  Receive Date: 20230427
  Receipt Date: 20230427
  Transmission Date: 20230722
  Serious: Yes (Hospitalization)
  Sender: FDA-Public Use
  Company Number: IT-009507513-2304ITA002368

PATIENT
  Age: 61 Year
  Sex: Female
  Weight: 50.5 kg

DRUGS (3)
  1. LINEZOLID [Suspect]
     Active Substance: LINEZOLID
     Indication: Lung abscess
     Dosage: 600 MG, QD, 600 MG DAILY
     Route: 042
     Dates: start: 20221214, end: 20230205
  2. AMOXICILLIN [Suspect]
     Active Substance: AMOXICILLIN
     Indication: Lung abscess
     Dosage: 875 MG, QD, 875 MG DAILY
     Route: 048
     Dates: start: 20230114, end: 20230205
  3. ERTAPENEM SODIUM [Suspect]
     Active Substance: ERTAPENEM SODIUM
     Indication: Lung abscess
     Dosage: 1000 MILLIGRAM, QD
     Route: 042
     Dates: start: 20221214, end: 20230205

REACTIONS (1)
  - Drug intolerance [Recovered/Resolved]

NARRATIVE: CASE EVENT DATE: 20230127
